FAERS Safety Report 7979541-6 (Version None)
Quarter: 2011Q4

REPORT INFORMATION
  Report Type: 
  Country: None (occurrence: None)
  Receive Date: 20111213
  Receipt Date: 20111213
  Transmission Date: 20120403
  Serious: Yes (Hospitalization)
  Sender: FDA-Public Use
  Company Number: None

PATIENT
  Age: 56 Year
  Sex: Female
  Weight: 62.1 kg

DRUGS (1)
  1. RIBAVIRIN [Suspect]
     Indication: HEPATITIS C
     Dosage: 800 MG BID PO
     Route: 048
     Dates: start: 20090921, end: 20111119

REACTIONS (18)
  - HEADACHE [None]
  - MUSCLE SPASMS [None]
  - DYSPNOEA [None]
  - ANXIETY [None]
  - PANIC ATTACK [None]
  - PYREXIA [None]
  - LETHARGY [None]
  - PALPITATIONS [None]
  - DELUSION [None]
  - AGITATION [None]
  - CONFUSIONAL STATE [None]
  - DEPRESSION [None]
  - VOMITING [None]
  - NAUSEA [None]
  - HAEMOGLOBIN DECREASED [None]
  - HALLUCINATION [None]
  - DECREASED APPETITE [None]
  - MYALGIA [None]
